FAERS Safety Report 21573907 (Version 1)
Quarter: 2022Q4

REPORT INFORMATION
  Report Type: Other
  Country: None (occurrence: US)
  Receive Date: 20221109
  Receipt Date: 20221109
  Transmission Date: 20230112
  Serious: Yes (Other)
  Sender: FDA-Public Use
  Company Number: US-Fagron Sterile Services-2134713

PATIENT

DRUGS (1)
  1. OXYTOCIN [Suspect]
     Active Substance: OXYTOCIN

REACTIONS (1)
  - Haemorrhage [None]
